FAERS Safety Report 7085143-9 (Version None)
Quarter: 2010Q4

REPORT INFORMATION
  Report Type: 
  Country: None (occurrence: None)
  Receive Date: 20101018
  Receipt Date: 20100930
  Transmission Date: 20110411
  Serious: Yes (Life-Threatening)
  Sender: FDA-Public Use
  Company Number: GAM-282-10-FR

PATIENT
  Age: 54 Year
  Sex: Male

DRUGS (4)
  1. OCTAGAM [Suspect]
     Indication: IMMUNODEFICIENCY COMMON VARIABLE
     Dosage: 30 G I.V.
     Route: 042
     Dates: start: 20100628, end: 20100719
  2. NEORECORMON (EPOETIN BETA) [Suspect]
     Indication: B-CELL LYMPHOMA
     Dosage: S.C.
     Route: 058
     Dates: start: 20100621, end: 20100830
  3. RITUXAN [Suspect]
     Indication: B-CELL LYMPHOMA
     Dosage: 375 MG/M2 I.V.
     Route: 042
     Dates: start: 20100621, end: 20100621
  4. BENDAMUSTINE [Suspect]
     Indication: B-CELL LYMPHOMA
     Dosage: 90 MG/M2 I.V.
     Route: 042
     Dates: start: 20100621, end: 20100622

REACTIONS (2)
  - JUGULAR VEIN THROMBOSIS [None]
  - SUBCLAVIAN VEIN THROMBOSIS [None]
